FAERS Safety Report 4888703-6 (Version None)
Quarter: 2005Q4

REPORT INFORMATION
  Report Type: 
  Country: None (occurrence: None)
  Receive Date: 20051216
  Receipt Date: 20050901
  Transmission Date: 20060501
  Serious: No
  Sender: FDA-Public Use
  Company Number: USA0509107167

PATIENT
  Age: 57 Year
  Sex: Male

DRUGS (7)
  1. CIALIS [Suspect]
     Indication: ERECTILE DYSFUNCTION
     Dosage: 20 MG
     Dates: start: 20050809
  2. FLEXERIL [Concomitant]
  3. MOBIC [Concomitant]
  4. TOPAMAX [Concomitant]
  5. LEXAPRO [Concomitant]
  6. PROPOXY [Concomitant]
  7. HYDROCODONE BITARTRATE [Concomitant]

REACTIONS (1)
  - DRUG INEFFECTIVE [None]
